FAERS Safety Report 8177628-9 (Version None)
Quarter: 2012Q1

REPORT INFORMATION
  Report Type: 
  Country: None (occurrence: None)
  Receive Date: 20120301
  Receipt Date: 20120217
  Transmission Date: 20120608
  Serious: Yes (Hospitalization)
  Sender: FDA-Public Use
  Company Number: PHEH2012US003934

PATIENT
  Sex: Female
  Weight: 55.8 kg

DRUGS (4)
  1. AMBIEN [Concomitant]
     Dosage: 6.25 MG, QHS
     Route: 048
  2. NEXIUM [Concomitant]
  3. ATENOLOL [Concomitant]
     Route: 048
  4. GLEEVEC [Suspect]
     Indication: CHRONIC MYELOID LEUKAEMIA
     Dosage: 400 MG, DAILY
     Route: 048
     Dates: start: 20100309

REACTIONS (3)
  - BRONCHITIS [None]
  - ASCITES [None]
  - FLUID RETENTION [None]
